FAERS Safety Report 8847030 (Version 1)
Quarter: 2012Q4

REPORT INFORMATION
  Report Type: Spontaneous
  Country: JP (occurrence: None)
  Receive Date: 20121016
  Receipt Date: 20121016
  Transmission Date: 20130627
  Serious: Yes (Hospitalization)
  Sender: FDA-Public Use
  Company Number: US-2012-10978

PATIENT
  Age: 47 Year

DRUGS (3)
  1. CILOSTAZOL [Suspect]
  2. ASPIRIN [Concomitant]
  3. NICORANDIL [Concomitant]

REACTIONS (2)
  - Coronary artery reocclusion [None]
  - Angina pectoris [None]
